FAERS Safety Report 5707761-X (Version None)
Quarter: 2008Q2

REPORT INFORMATION
  Report Type: 
  Country: None (occurrence: None)
  Receive Date: 20080417
  Receipt Date: 20080410
  Transmission Date: 20081010
  Serious: Yes (Death)
  Sender: FDA-Public Use
  Company Number: DE-BAYER-200816559GPV

PATIENT
  Sex: Male

DRUGS (4)
  1. MOXIFLOXACIN HCL [Suspect]
     Indication: SEPSIS
     Dosage: TOTAL DAILY DOSE: 400 MG  UNIT DOSE: 400 MG
     Route: 041
     Dates: start: 20080401, end: 20080406
  2. MEROPENEM [Suspect]
     Indication: SEPSIS
     Dosage: TOTAL DAILY DOSE: 0.5 G
     Route: 041
     Dates: start: 20080401, end: 20080406
  3. NORADRENALINE [Concomitant]
     Indication: SHOCK
     Route: 065
     Dates: start: 20080401, end: 20080406
  4. INSULIN [Concomitant]
     Indication: HYPERGLYCAEMIA
     Route: 065
     Dates: start: 20080404, end: 20080406

REACTIONS (2)
  - VENTRICULAR FIBRILLATION [None]
  - VENTRICULAR TACHYCARDIA [None]
